FAERS Safety Report 5740281-5 (Version None)
Quarter: 2008Q2

REPORT INFORMATION
  Report Type: 
  Country: None (occurrence: None)
  Receive Date: 20080516
  Receipt Date: 20080509
  Transmission Date: 20081010
  Serious: Yes (Other)
  Sender: FDA-Public Use
  Company Number: US-ASTRAZENECA-2008UW06321

PATIENT
  Age: 71 Year
  Sex: Female
  Weight: 90.7 kg

DRUGS (9)
  1. CRESTOR [Suspect]
     Indication: HYPERCHOLESTEROLAEMIA
     Route: 048
     Dates: start: 20040101
  2. GEMFIBROZIL [Interacting]
     Route: 048
     Dates: start: 20060101
  3. OMEPRAZOLE [Concomitant]
  4. ATENOLOL [Concomitant]
  5. ETODOLAC [Concomitant]
  6. TRIAMTERENE AND HYDROCHLOROTHIAZIDE [Concomitant]
  7. CALCIUM [Concomitant]
  8. ASCORBIC ACID [Concomitant]
  9. MULTI-VITAMIN [Concomitant]

REACTIONS (7)
  - BLOOD CREATINE [None]
  - CREATINE URINE [None]
  - DRUG INTERACTION [None]
  - HYPERTENSION [None]
  - NEPHROSCLEROSIS [None]
  - RENAL FAILURE [None]
  - RENAL IMPAIRMENT [None]
